FAERS Safety Report 21918466 (Version 1)
Quarter: 2023Q1

REPORT INFORMATION
  Report Type: Report from Study
  Country: US (occurrence: US)
  Receive Date: 20230127
  Receipt Date: 20230127
  Transmission Date: 20230418
  Serious: Yes (Death)
  Sender: FDA-Public Use
  Company Number: US-ABBVIE-4284632

PATIENT
  Sex: Male

DRUGS (1)
  1. CREON [Suspect]
     Active Substance: PANCRELIPASE AMYLASE\PANCRELIPASE LIPASE\PANCRELIPASE PROTEASE
     Indication: Product used for unknown indication
     Dosage: 24000 UNITS CAPSULE/TAKE 2 CAPSULES BY MOUTH 3 TIMES DAILY WITH MEAL AND TAKE 1 CAPSULE WITH SNACKS.
     Route: 048

REACTIONS (1)
  - Death [Fatal]
